FAERS Safety Report 5092606-4 (Version None)
Quarter: 2006Q3

REPORT INFORMATION
  Report Type: 
  Country: None (occurrence: None)
  Receive Date: 20060828
  Receipt Date: 20060815
  Transmission Date: 20061208
  Serious: Yes (Hospitalization, Other)
  Sender: FDA-Public Use
  Company Number: 2006084126

PATIENT
  Age: 86 Year
  Sex: Female
  Weight: 46.2669 kg

DRUGS (1)
  1. DETROL LA [Suspect]
     Indication: HYPERTONIC BLADDER

REACTIONS (3)
  - DEPRESSION [None]
  - HYPERTENSION [None]
  - URINARY TRACT INFECTION [None]
